FAERS Safety Report 4469968-1 (Version None)
Quarter: 2004Q3

REPORT INFORMATION
  Report Type: 
  Country: None (occurrence: None)
  Receive Date: 20040920
  Receipt Date: 20040621
  Transmission Date: 20050211
  Serious: No
  Sender: FDA-Public Use
  Company Number: A-US2004-06651

PATIENT
  Age: 62 Year
  Sex: Male

DRUGS (3)
  1. TRACLEER [Suspect]
     Dosage: SEE IMAGE
     Route: 048
     Dates: start: 20030901, end: 20031001
  2. TRACLEER [Suspect]
     Dosage: SEE IMAGE
     Route: 048
     Dates: start: 20031001
  3. FLOLAN [Concomitant]

REACTIONS (1)
  - OVERDOSE [None]
